FAERS Safety Report 6774809-3 (Version None)
Quarter: 2010Q2

REPORT INFORMATION
  Report Type: 
  Country: None (occurrence: None)
  Receive Date: 20100617
  Receipt Date: 20100608
  Transmission Date: 20101027
  Serious: Yes (Other)
  Sender: FDA-Public Use
  Company Number: US-ROCHE-709305

PATIENT
  Sex: Female
  Weight: 40.9 kg

DRUGS (7)
  1. BONIVA [Suspect]
     Indication: OSTEOPOROSIS
     Dosage: RECEIVED IT FOR YEARS
     Route: 048
  2. LASIX [Concomitant]
  3. COZAAR [Concomitant]
  4. CRESTOR [Concomitant]
  5. VITAMIN TAB [Concomitant]
  6. ADVAIR DISKUS 100/50 [Concomitant]
  7. CALCIUM CARBONATE [Concomitant]

REACTIONS (2)
  - MYOCARDIAL INFARCTION [None]
  - OBSTRUCTIVE AIRWAYS DISORDER [None]
